FAERS Safety Report 17243016 (Version 2)
Quarter: 2020Q1

REPORT INFORMATION
  Report Type: Spontaneous
  Country: US (occurrence: US)
  Receive Date: 20200107
  Receipt Date: 20200113
  Transmission Date: 20200409
  Serious: Yes (Life-Threatening, Other)
  Sender: FDA-Public Use
  Company Number: US-PFIZER INC-2020000438

PATIENT
  Age: 50 Year
  Sex: Male

DRUGS (1)
  1. HEPARIN SODIUM. [Suspect]
     Active Substance: HEPARIN SODIUM
     Indication: PULMONARY EMBOLISM
     Dosage: UNK (INFUSION)

REACTIONS (5)
  - Cardiac arrest [Recovered/Resolved]
  - Peripheral artery thrombosis [Unknown]
  - Hypotension [Unknown]
  - Venous thrombosis limb [Unknown]
  - Heparin-induced thrombocytopenia [Recovering/Resolving]
